FAERS Safety Report 8531125-7 (Version None)
Quarter: 2012Q3

REPORT INFORMATION
  Report Type: 
  Country: None (occurrence: None)
  Receive Date: 20120711
  Receipt Date: 20120704
  Transmission Date: 20120928
  Serious: Yes (Death)
  Sender: FDA-Public Use
  Company Number: 2012TR0212

PATIENT
  Age: 3 Month
  Sex: Male

DRUGS (1)
  1. ORFADIN [Suspect]
     Indication: TYROSINAEMIA
     Dosage: 10 MG (5 MG, 2 IN 1 D)
     Dates: start: 20120425

REACTIONS (2)
  - METABOLIC ACIDOSIS [None]
  - HAEMORRHAGE [None]
